FAERS Safety Report 4697871-0 (Version None)
Quarter: 2005Q2

REPORT INFORMATION
  Report Type: 
  Country: None (occurrence: None)
  Receive Date: 20050621
  Receipt Date: 20050614
  Transmission Date: 20051028
  Serious: Yes (Other)
  Sender: FDA-Public Use
  Company Number: 2005AL002292

PATIENT
  Age: 3 Year
  Sex: Male

DRUGS (1)
  1. SERAX [Suspect]
     Dosage: PO
     Route: 048
     Dates: start: 20050601, end: 20050601

REACTIONS (3)
  - ACCIDENTAL OVERDOSE [None]
  - BALANCE DISORDER [None]
  - WRONG DRUG ADMINISTERED [None]
